FAERS Safety Report 10710335 (Version 1)
Quarter: 2015Q1

REPORT INFORMATION
  Report Type: Spontaneous
  Country: US (occurrence: None)
  Receive Date: 20150112
  Receipt Date: 20150112
  Transmission Date: 20150721
  Serious: Yes (Other)
  Sender: FDA-Public Use
  Company Number: ADE15-001

PATIENT
  Age: 67 Year
  Sex: Female
  Weight: 74.8 kg

DRUGS (13)
  1. HEPARIN [Suspect]
     Active Substance: HEPARIN SODIUM
     Indication: STENT PLACEMENT
     Dosage: 12,000 U ONCE, IV?
     Route: 042
     Dates: start: 20150105, end: 20150105
  2. HEPARIN [Suspect]
     Active Substance: HEPARIN SODIUM
     Indication: ANGINA PECTORIS
     Dosage: 12,000 U ONCE, IV?
     Route: 042
     Dates: start: 20150105, end: 20150105
  3. CHOLECALCIFEROL [Concomitant]
     Active Substance: CHOLECALCIFEROL
  4. METOPROLOL SUCCINATE. [Concomitant]
     Active Substance: METOPROLOL SUCCINATE
  5. LEVOTHYROXINE [Concomitant]
     Active Substance: LEVOTHYROXINE
  6. NITROGLYCERIN. [Concomitant]
     Active Substance: NITROGLYCERIN
  7. PREDNISONE. [Concomitant]
     Active Substance: PREDNISONE
  8. ROSUVASTATIN [Concomitant]
     Active Substance: ROSUVASTATIN
  9. ASPIRIN. [Concomitant]
     Active Substance: ASPIRIN
  10. ACETAMINOPHEN. [Concomitant]
     Active Substance: ACETAMINOPHEN
  11. ISOSORBIDE MONONITRATE. [Concomitant]
     Active Substance: ISOSORBIDE MONONITRATE
  12. LANSOPRAZOLE. [Concomitant]
     Active Substance: LANSOPRAZOLE
  13. HEPARIN IV DRIP [Concomitant]

REACTIONS (1)
  - Coagulation time shortened [None]

NARRATIVE: CASE EVENT DATE: 20150105
